FAERS Safety Report 19441240 (Version 2)
Quarter: 2021Q3

REPORT INFORMATION
  Report Type: Report from Study
  Country: CA (occurrence: CA)
  Receive Date: 20210621
  Receipt Date: 20210804
  Transmission Date: 20211014
  Serious: Yes (Hospitalization, Other)
  Sender: FDA-Public Use
  Company Number: CA-AMGEN-CANSL2021053452

PATIENT
  Age: 70 Year
  Sex: Male

DRUGS (2)
  1. ENBREL [Suspect]
     Active Substance: ETANERCEPT
     Indication: RHEUMATOID ARTHRITIS
     Dosage: 50 MILLIGRAM, QWK
     Route: 065
  2. ENBREL [Suspect]
     Active Substance: ETANERCEPT
     Dosage: UNK UNK, QWK
     Route: 065

REACTIONS (2)
  - Pulmonary oedema [Unknown]
  - Fluid overload [Unknown]

NARRATIVE: CASE EVENT DATE: 2021
